FAERS Safety Report 7406652-6 (Version None)
Quarter: 2011Q2

REPORT INFORMATION
  Report Type: 
  Country: None (occurrence: None)
  Receive Date: 20110411
  Receipt Date: 20110331
  Transmission Date: 20111010
  Serious: Yes (Other)
  Sender: FDA-Public Use
  Company Number: US-BAXTER-2010BH001595

PATIENT
  Age: 27 Year
  Sex: Female
  Weight: 53 kg

DRUGS (47)
  1. HEPARIN SODIUM INJECTION [Suspect]
     Route: 042
     Dates: start: 20070901
  2. HEPARIN SODIUM INJECTION [Suspect]
     Route: 050
     Dates: start: 20070928
  3. HEPARIN SODIUM INJECTION [Suspect]
     Route: 040
     Dates: start: 20071005, end: 20080130
  4. CLONIDINE [Suspect]
     Indication: PRODUCT USED FOR UNKNOWN INDICATION
     Route: 065
  5. HEPARIN SODIUM INJECTION [Suspect]
     Indication: CENTRAL VENOUS CATHETERISATION
     Route: 065
     Dates: start: 20070830
  6. HEPARIN SODIUM INJECTION [Suspect]
     Route: 042
     Dates: start: 20071102, end: 20100630
  7. HEPARIN SODIUM INJECTION [Suspect]
     Route: 010
     Dates: start: 20071005, end: 20080130
  8. METOPROLOL TARTRATE [Concomitant]
     Indication: PRODUCT USED FOR UNKNOWN INDICATION
     Route: 048
  9. NIFEDIPINE [Concomitant]
     Indication: PRODUCT USED FOR UNKNOWN INDICATION
     Route: 048
  10. PROMETHAZINE [Concomitant]
     Indication: PRODUCT USED FOR UNKNOWN INDICATION
     Route: 048
  11. SERTRALINE HYDROCHLORIDE [Concomitant]
     Indication: PRODUCT USED FOR UNKNOWN INDICATION
     Route: 048
  12. HEPARIN SODIUM INJECTION [Suspect]
     Route: 010
     Dates: start: 20070928
  13. HEPARIN SODIUM INJECTION [Suspect]
     Route: 042
     Dates: start: 20091007, end: 20091007
  14. HEPARIN SODIUM INJECTION [Suspect]
     Route: 040
     Dates: start: 20070928
  15. HEPARIN SODIUM INJECTION [Suspect]
     Route: 010
     Dates: start: 20071005, end: 20080130
  16. HEPARIN SODIUM INJECTION [Suspect]
     Route: 040
     Dates: start: 20071005, end: 20080130
  17. KENALOG [Concomitant]
     Indication: PRODUCT USED FOR UNKNOWN INDICATION
     Route: 031
     Dates: start: 20050819
  18. HEPARIN SODIUM INJECTION [Suspect]
     Route: 042
     Dates: start: 20071102, end: 20100630
  19. HEPARIN SODIUM INJECTION [Suspect]
     Route: 010
     Dates: start: 20090812, end: 20090812
  20. HEPARIN SODIUM INJECTION [Suspect]
     Route: 040
     Dates: start: 20070928
  21. FOSRENOL [Concomitant]
     Indication: PRODUCT USED FOR UNKNOWN INDICATION
     Route: 065
  22. HEPARIN SODIUM INJECTION [Suspect]
     Route: 042
     Dates: start: 20070904, end: 20071107
  23. HEPARIN SODIUM INJECTION [Suspect]
     Route: 010
     Dates: start: 20070926
  24. MINOXIDIL [Suspect]
     Indication: PRODUCT USED FOR UNKNOWN INDICATION
     Route: 065
  25. LIPITOR [Concomitant]
     Indication: PRODUCT USED FOR UNKNOWN INDICATION
     Route: 048
  26. PHENERGAN HCL [Concomitant]
     Indication: PRODUCT USED FOR UNKNOWN INDICATION
     Route: 061
  27. LANTUS [Concomitant]
     Indication: PRODUCT USED FOR UNKNOWN INDICATION
     Route: 065
  28. INSULIN LISPRO [Concomitant]
     Indication: PRODUCT USED FOR UNKNOWN INDICATION
     Route: 065
  29. HEPARIN SODIUM INJECTION [Suspect]
     Indication: HAEMODIALYSIS
     Route: 065
     Dates: start: 20070830
  30. HEPARIN SODIUM INJECTION [Suspect]
     Route: 042
     Dates: start: 20070904, end: 20080326
  31. HEPARIN SODIUM INJECTION [Suspect]
     Route: 040
     Dates: start: 20091005, end: 20091005
  32. HEPARIN SODIUM INJECTION [Suspect]
     Route: 040
     Dates: start: 20091005, end: 20091005
  33. HEPARIN SODIUM INJECTION [Suspect]
     Route: 042
     Dates: start: 20091007, end: 20091007
  34. LISINOPRIL [Concomitant]
     Indication: PRODUCT USED FOR UNKNOWN INDICATION
     Route: 048
  35. HEPARIN SODIUM INJECTION [Suspect]
     Route: 042
     Dates: start: 20070901
  36. HEPARIN SODIUM INJECTION [Suspect]
     Route: 010
     Dates: start: 20090812, end: 20090812
  37. HEPARIN SODIUM INJECTION [Suspect]
     Route: 040
     Dates: start: 20070926
  38. HEPARIN SODIUM INJECTION [Suspect]
     Route: 042
     Dates: start: 20070904, end: 20071107
  39. HEPARIN SODIUM INJECTION [Suspect]
     Route: 010
     Dates: start: 20070926
  40. HEPARIN SODIUM INJECTION [Suspect]
     Route: 042
     Dates: start: 20070904, end: 20080326
  41. HEPARIN SODIUM INJECTION [Suspect]
     Route: 040
     Dates: start: 20070926
  42. HEPARIN SODIUM INJECTION [Suspect]
     Route: 050
     Dates: start: 20070928
  43. HEPARIN SODIUM INJECTION [Suspect]
     Route: 010
     Dates: start: 20070928
  44. HEPARIN SODIUM INJECTION [Suspect]
     Route: 042
     Dates: start: 20080331
  45. HEPARIN SODIUM INJECTION [Suspect]
     Route: 042
     Dates: start: 20080331
  46. HEPARIN SODIUM INJECTION [Suspect]
     Route: 042
     Dates: start: 20080402, end: 20080901
  47. HEPARIN SODIUM INJECTION [Suspect]
     Route: 042
     Dates: start: 20080402, end: 20080901

REACTIONS (28)
  - RESPIRATORY FAILURE [None]
  - VASCULAR GRAFT THROMBOSIS [None]
  - COAGULOPATHY [None]
  - DIZZINESS [None]
  - FEAR [None]
  - CHEST PAIN [None]
  - CONVULSION [None]
  - ABDOMINAL PAIN [None]
  - HYPERPARATHYROIDISM [None]
  - DEPRESSION [None]
  - VOMITING [None]
  - RENAL FAILURE ACUTE [None]
  - PLATELET COUNT DECREASED [None]
  - SPLENIC RUPTURE [None]
  - BLOOD PRESSURE FLUCTUATION [None]
  - MALAISE [None]
  - HEADACHE [None]
  - ANXIETY [None]
  - NAUSEA [None]
  - HYPERTENSIVE EMERGENCY [None]
  - STRESS [None]
  - MYOCARDIAL INFARCTION [None]
  - CEREBROVASCULAR ACCIDENT [None]
  - HYPOTENSION [None]
  - MUSCULAR WEAKNESS [None]
  - DYSURIA [None]
  - HALLUCINATION, VISUAL [None]
  - HYPERHIDROSIS [None]
